FAERS Safety Report 7487904-0 (Version None)
Quarter: 2011Q2

REPORT INFORMATION
  Report Type: 
  Country: None (occurrence: None)
  Receive Date: 20110511
  Receipt Date: 20110505
  Transmission Date: 20111010
  Serious: Yes (Other)
  Sender: FDA-Public Use
  Company Number: CIP11001124

PATIENT
  Sex: Female

DRUGS (2)
  1. GLUCOCORTICODIDS [Concomitant]
  2. RISEDRONATE SODIUM [Suspect]
     Dosage: ORAL
     Route: 048

REACTIONS (1)
  - FEMUR FRACTURE [None]
